FAERS Safety Report 10892756 (Version 6)
Quarter: 2015Q2

REPORT INFORMATION
  Report Type: Spontaneous
  Country: GB (occurrence: GB)
  Receive Date: 20150306
  Receipt Date: 20150506
  Transmission Date: 20150821
  Serious: Yes (Other)
  Sender: FDA-Public Use
  Company Number: GB-ACTAVIS-2015-04179

PATIENT
  Age: 3 Month
  Sex: Male

DRUGS (14)
  1. DEXAMETHASONE (UNKNOWN) [Suspect]
     Active Substance: DEXAMETHASONE
     Dosage: 0.25 MG, BID (DAILY DOSE: 0.5 MG)
     Route: 048
     Dates: start: 20150121, end: 20150123
  2. PARACETAMOL [Concomitant]
     Active Substance: ACETAMINOPHEN
     Indication: PRODUCT USED FOR UNKNOWN INDICATION
     Dosage: 50 MG, PRN. 4 TO 6 HOURLY WHEN REQUIRED
     Route: 048
     Dates: start: 20141229, end: 20150209
  3. SPIRONOLACTONE (UNKNOWN) [Suspect]
     Active Substance: SPIRONOLACTONE
     Indication: PRODUCT USED FOR UNKNOWN INDICATION
     Dosage: 4.1 MG, BID (TWICE DAILY)
     Route: 048
     Dates: start: 20150202
  4. SPIRONOLACTONE (UNKNOWN) [Suspect]
     Active Substance: SPIRONOLACTONE
     Dosage: 3.3 MG, BID (TWICE DAILY)
     Route: 048
     Dates: start: 20141225, end: 20150115
  5. DEXAMETHASONE (UNKNOWN) [Suspect]
     Active Substance: DEXAMETHASONE
     Indication: PRODUCT USED FOR UNKNOWN INDICATION
     Dosage: 0.25 MG, DAILY
     Route: 048
     Dates: start: 20150124
  6. DEXAMETHASONE (UNKNOWN) [Suspect]
     Active Substance: DEXAMETHASONE
     Dosage: 0.45 MG, BID (DAILY DOSE 0.9 MG)
     Route: 048
     Dates: start: 20150117, end: 20150120
  7. FUROSEMIDE (UNKNOWN) [Suspect]
     Active Substance: FUROSEMIDE
     Dosage: 3 MG, BID (TWICE A DAY)
     Route: 048
     Dates: start: 20141224, end: 20150115
  8. LACTULOSE. [Concomitant]
     Active Substance: LACTULOSE
     Indication: PRODUCT USED FOR UNKNOWN INDICATION
     Dosage: 1 ML, TID (THREE TIMES A DAY)
     Route: 048
     Dates: start: 20141219
  9. FUROSEMIDE (UNKNOWN) [Suspect]
     Active Substance: FUROSEMIDE
     Indication: PRODUCT USED FOR UNKNOWN INDICATION
     Dosage: 3.9 MG, BID (TWICE A DAY)
     Route: 048
     Dates: start: 20150116
  10. SPIRONOLACTONE (UNKNOWN) [Suspect]
     Active Substance: SPIRONOLACTONE
     Dosage: 3.9 MG, BID (TWICE DAILY)
     Route: 048
     Dates: start: 20150116, end: 20150201
  11. DEXAMETHASONE (UNKNOWN) [Suspect]
     Active Substance: DEXAMETHASONE
     Dosage: 0.9 MG, BID (DAILY DOSE 1.8 MG)
     Route: 048
     Dates: start: 20150115, end: 20150117
  12. RANITIDINE [Concomitant]
     Active Substance: RANITIDINE\RANITIDINE HYDROCHLORIDE
     Indication: PRODUCT USED FOR UNKNOWN INDICATION
     Dosage: 11.8 MG, TID (THREE TIMES A DAY)
     Route: 048
     Dates: start: 20150116
  13. RANITIDINE [Concomitant]
     Active Substance: RANITIDINE\RANITIDINE HYDROCHLORIDE
     Dosage: 4.7 MG, TID (THREE TIMES A DAY)
     Route: 048
     Dates: start: 20141218, end: 20150115
  14. CHLOROTHIAZIDE (WATSON LABORATORIES) [Suspect]
     Active Substance: CHLOROTHIAZIDE
     Indication: PRODUCT USED FOR UNKNOWN INDICATION
     Dosage: 41 MG, BID. TO CONTINUE ON DISCHARGE.
     Route: 048
     Dates: start: 20150202

REACTIONS (1)
  - Rib fracture [Recovering/Resolving]

NARRATIVE: CASE EVENT DATE: 201502
